FAERS Safety Report 25499403 (Version 1)
Quarter: 2025Q3

REPORT INFORMATION
  Report Type: Spontaneous
  Country: CN (occurrence: CN)
  Receive Date: 20250701
  Receipt Date: 20250701
  Transmission Date: 20251021
  Serious: Yes (Life-Threatening, Hospitalization)
  Sender: PFIZER
  Company Number: CN-PFIZER INC-PV202500077033

PATIENT
  Age: 70 Year
  Sex: Male

DRUGS (3)
  1. TYGACIL [Suspect]
     Active Substance: TIGECYCLINE
     Indication: Septic shock
     Dosage: 50 MG, 2X/DAY
     Route: 041
     Dates: start: 20250603, end: 20250610
  2. CEFOPERAZONE SODIUM\SULBACTAM SODIUM [Suspect]
     Active Substance: CEFOPERAZONE SODIUM\SULBACTAM SODIUM
     Indication: Septic shock
     Dosage: 1 G, 3X/DAY
     Route: 041
     Dates: start: 20250529, end: 20250609
  3. LEVOFLOXACIN [Concomitant]
     Active Substance: LEVOFLOXACIN
     Indication: Septic shock
     Dosage: 0.5 G, 1X/DAY
     Route: 041
     Dates: start: 20250527, end: 20250610

REACTIONS (3)
  - Gastrointestinal haemorrhage [Recovering/Resolving]
  - Coagulopathy [Recovering/Resolving]
  - Platelet count decreased [Recovering/Resolving]

NARRATIVE: CASE EVENT DATE: 20250609
